FAERS Safety Report 9712510 (Version 1)
Quarter: 2013Q4

REPORT INFORMATION
  Report Type: Spontaneous
  Country: US (occurrence: None)
  Receive Date: 20131125
  Receipt Date: 20131125
  Transmission Date: 20140711
  Serious: Yes (Other)
  Sender: FDA-Public Use
  Company Number: None

PATIENT
  Age: 77 Year
  Sex: Male
  Weight: 72.58 kg

DRUGS (6)
  1. PRAVASTATIN [Suspect]
     Indication: BLOOD CHOLESTEROL INCREASED
     Dosage: TABLET
     Route: 048
     Dates: start: 20131020, end: 20131107
  2. GLUCOSAMINE HCL [Concomitant]
  3. CALCIUM CITRATE [Concomitant]
  4. DHEA [Concomitant]
  5. MELATONIN [Concomitant]
  6. FISH OIL [Concomitant]

REACTIONS (5)
  - Pain [None]
  - Pain in extremity [None]
  - Insomnia [None]
  - Product substitution issue [None]
  - Product quality issue [None]
